FAERS Safety Report 4752272-1 (Version None)
Quarter: 2005Q3

REPORT INFORMATION
  Report Type: 
  Country: None (occurrence: None)
  Receive Date: 20050824
  Receipt Date: 20050824
  Transmission Date: 20060218
  Serious: Yes (Other)
  Sender: FDA-Public Use
  Company Number: None

PATIENT
  Sex: Male
  Weight: 77.1115 kg

DRUGS (1)
  1. PRILOSEC [Suspect]
     Dosage: ONE TABLET   ONCE PER DAY   PO
     Route: 048
     Dates: start: 20050801, end: 20050821

REACTIONS (9)
  - BLOOD PRESSURE INCREASED [None]
  - BURNING SENSATION [None]
  - DIARRHOEA [None]
  - DYSPNOEA [None]
  - ERYTHEMA [None]
  - FLUSHING [None]
  - HYPOVENTILATION [None]
  - OEDEMA PERIPHERAL [None]
  - PRURITUS [None]
